FAERS Safety Report 7826905-7 (Version None)
Quarter: 2011Q4

REPORT INFORMATION
  Report Type: 
  Country: None (occurrence: None)
  Receive Date: 20111018
  Receipt Date: 20111005
  Transmission Date: 20120403
  Serious: Yes (Hospitalization)
  Sender: FDA-Public Use
  Company Number: LEO-2011-00805

PATIENT
  Age: 87 Year
  Sex: Female
  Weight: 73 kg

DRUGS (9)
  1. ALDACTONE [Suspect]
     Indication: CARDIAC FAILURE
     Dosage: 25 MG, ORAL
     Route: 048
  2. INNOHEP [Suspect]
     Indication: DEEP VEIN THROMBOSIS
     Dosage: SUBCUTANEOUS; SUBCUTANEOUS
     Route: 058
     Dates: start: 20110616
  3. INNOHEP [Suspect]
     Indication: DEEP VEIN THROMBOSIS
     Dosage: SUBCUTANEOUS; SUBCUTANEOUS
     Route: 058
     Dates: start: 20110629
  4. DOLIPRANE (PARACEAMOL) [Concomitant]
  5. SPECIAFOLDINE (FOLIC ACID) [Concomitant]
  6. LASILIX (FUROSEMIDE) (40 MILLIGRAM, TABLET) [Suspect]
     Indication: CARDIAC FAILURE
     Dosage: 2 IN 1 D, ORAL
     Route: 048
  7. EUPANTOL (PANTOPRAZOLE SODIUM SESQUIHYDRATE) [Concomitant]
  8. LEVOTHYROXINE SODIUM [Concomitant]
  9. LEXOMOL (BROMAZEPAM) [Concomitant]

REACTIONS (7)
  - INCORRECT DRUG ADMINISTRATION DURATION [None]
  - HAEMORRHAGE [None]
  - HAEMATOMA [None]
  - ANAEMIA [None]
  - CREATININE RENAL CLEARANCE DECREASED [None]
  - HYPERKALAEMIA [None]
  - CONTUSION [None]
